FAERS Safety Report 26035722 (Version 1)
Quarter: 2025Q4

REPORT INFORMATION
  Report Type: Spontaneous
  Country: US (occurrence: None)
  Receive Date: 20251112
  Receipt Date: 20251112
  Transmission Date: 20260117
  Serious: Yes (Other)
  Sender: FDA-CTU
  Company Number: None

PATIENT
  Age: 85 Year
  Sex: Female

DRUGS (1)
  1. PIRFENIDONE [Suspect]
     Active Substance: PIRFENIDONE
     Indication: Pulmonary fibrosis
     Dosage: 534MG THREE TIMES DAILY?

REACTIONS (4)
  - Cystitis interstitial [None]
  - Refusal of treatment by patient [None]
  - Intentional dose omission [None]
  - Condition aggravated [None]
